FAERS Safety Report 21640686 (Version 4)
Quarter: 2024Q1

REPORT INFORMATION
  Report Type: Report from Study
  Country: US (occurrence: US)
  Receive Date: 20221124
  Receipt Date: 20240212
  Transmission Date: 20240410
  Serious: Yes (Hospitalization, Other)
  Sender: FDA-Public Use
  Company Number: US-ABBVIE-22K-163-4487721-00

PATIENT
  Age: 79 Year
  Sex: Female

DRUGS (7)
  1. HUMIRA [Suspect]
     Active Substance: ADALIMUMAB
     Indication: Crohn^s disease
     Dosage: CITRATE FREE, ?STRENGTH 40 MILLIGRAM
     Route: 058
     Dates: start: 20100801, end: 20221019
  2. HUMIRA [Suspect]
     Active Substance: ADALIMUMAB
     Dosage: CITRATE FREE,  STRENGTH 40 MILLIGRAM?DRUG ONSET 2022
     Route: 058
  3. HUMIRA [Suspect]
     Active Substance: ADALIMUMAB
     Dosage: CITRATE FREE,  STRENGTH 40 MILLIGRAM
     Route: 058
  4. HUMIRA [Suspect]
     Active Substance: ADALIMUMAB
     Dosage: CITRATE FREE,  STRENGTH 40 MILLIGRAM
     Route: 058
  5. PFIZER-BIONTECH COVID-19 VACCINE [Concomitant]
     Active Substance: TOZINAMERAN
     Indication: COVID-19 immunisation
     Dosage: 1ST DOSE, ONCE
     Route: 030
     Dates: start: 20210102, end: 20210102
  6. PFIZER-BIONTECH COVID-19 VACCINE [Concomitant]
     Active Substance: TOZINAMERAN
     Indication: COVID-19 immunisation
     Dosage: 2ND DOSE, ONCE
     Route: 030
     Dates: start: 20210228, end: 20210228
  7. PFIZER-BIONTECH COVID-19 VACCINE [Concomitant]
     Active Substance: TOZINAMERAN
     Indication: COVID-19 immunisation
     Dosage: 3RD DOSE (BOOSTER), ONCE
     Route: 030
     Dates: start: 20210305, end: 20210305

REACTIONS (6)
  - Knee arthroplasty [Recovering/Resolving]
  - Diarrhoea [Unknown]
  - Device issue [Not Recovered/Not Resolved]
  - Post procedural complication [Unknown]
  - Haemorrhagic disorder [Unknown]
  - Constipation [Unknown]

NARRATIVE: CASE EVENT DATE: 20240107
